FAERS Safety Report 5145210-3 (Version None)
Quarter: 2006Q4

REPORT INFORMATION
  Report Type: 
  Country: None (occurrence: None)
  Receive Date: 20061107
  Receipt Date: 20061024
  Transmission Date: 20070319
  Serious: Yes (Other)
  Sender: FDA-Public Use
  Company Number: DE-ELI_LILLY_AND_COMPANY-DE200611000292

PATIENT
  Age: 61 Year
  Sex: Female

DRUGS (2)
  1. EVISTA [Suspect]
     Indication: BREAST CANCER
     Dosage: 60 MG, DAILY (1/D)
     Route: 048
     Dates: start: 20030101
  2. CLINOFEM [Concomitant]

REACTIONS (1)
  - THROMBOCYTOPENIA [None]
